FAERS Safety Report 11741798 (Version 2)
Quarter: 2015Q4

REPORT INFORMATION
  Report Type: Spontaneous
  Country: JP (occurrence: JP)
  Receive Date: 20151116
  Receipt Date: 20151201
  Transmission Date: 20160304
  Serious: Yes (Hospitalization)
  Sender: FDA-Public Use
  Company Number: JP-WATSON-2015-24148

PATIENT
  Age: 66 Year
  Sex: Male

DRUGS (3)
  1. RAPAFLO [Suspect]
     Active Substance: SILODOSIN
     Indication: DYSURIA
  2. RAPAFLO [Suspect]
     Active Substance: SILODOSIN
     Indication: BENIGN PROSTATIC HYPERPLASIA
     Dosage: 4 MG, TWICE DAILY
     Route: 048
     Dates: start: 20151006, end: 20151009
  3. FIRSTCIN [Concomitant]
     Active Substance: CEFOZOPRAN HYDROCHLORIDE
     Indication: PRODUCT USED FOR UNKNOWN INDICATION
     Dosage: 2 GRAM
     Route: 065
     Dates: start: 20151011, end: 20151021

REACTIONS (5)
  - Prostatitis [None]
  - Blood potassium increased [None]
  - Blood potassium decreased [None]
  - Rhabdomyolysis [Recovered/Resolved]
  - Blood sodium decreased [None]

NARRATIVE: CASE EVENT DATE: 20151010
